FAERS Safety Report 8471825 (Version 2)
Quarter: 2013Q1

REPORT INFORMATION
  Report Type: Spontaneous
  Country: US (occurrence: US)
  Receive Date: 20120322
  Receipt Date: 20130322
  Transmission Date: 20140127
  Serious: No
  Sender: FDA-Public Use
  Company Number: US-BRISTOL-MYERS SQUIBB COMPANY-16365801

PATIENT
  Age: 45 Year
  Sex: Female
  Weight: 60 kg

DRUGS (2)
  1. ERBITUX [Suspect]
     Indication: COLON CANCER
     Dosage: NO OF TREATMENT:PROBABLY EIGHT,13DEC11,19DEC11,03JAN12,09JAN,1623,30JAN12,06FEB12
     Route: 042
     Dates: start: 20111205
  2. IRINOTECAN [Concomitant]

REACTIONS (4)
  - Dry skin [Recovered/Resolved]
  - Skin fissures [Recovered/Resolved]
  - Rash [Recovered/Resolved]
  - Sexual dysfunction [Recovered/Resolved]
